FAERS Safety Report 7503811-9 (Version None)
Quarter: 2011Q2

REPORT INFORMATION
  Report Type: 
  Country: None (occurrence: None)
  Receive Date: 20110525
  Receipt Date: 20110516
  Transmission Date: 20111010
  Serious: Yes (Hospitalization)
  Sender: FDA-Public Use
  Company Number: US-JNJFOC-20110509137

PATIENT
  Age: 30 Year
  Sex: Female
  Weight: 71 kg

DRUGS (1)
  1. PARACETAMOL/DIPHENHYDRAMINE HCL [Suspect]
     Indication: PRODUCT USED FOR UNKNOWN INDICATION
     Dosage: 2 'HANDFULS' OF THE PRODUCTON 08MAY2011
     Route: 048

REACTIONS (5)
  - INTENTIONAL SELF-INJURY [None]
  - ABDOMINAL PAIN [None]
  - TRANSAMINASES INCREASED [None]
  - VOMITING [None]
  - INTENTIONAL OVERDOSE [None]
